FAERS Safety Report 6913067-3 (Version None)
Quarter: 2010Q3

REPORT INFORMATION
  Report Type: 
  Country: None (occurrence: None)
  Receive Date: 20100806
  Receipt Date: 20090626
  Transmission Date: 20110219
  Serious: Yes (Other)
  Sender: FDA-Public Use
  Company Number: US-PFIZER INC-2009216046

PATIENT
  Sex: Female

DRUGS (2)
  1. DETROL LA [Suspect]
  2. SINEMET [Concomitant]
     Dosage: UNK

REACTIONS (1)
  - HALLUCINATION [None]
